FAERS Safety Report 14380813 (Version 1)
Quarter: 2018Q1

REPORT INFORMATION
  Report Type: Spontaneous
  Country: CN (occurrence: CN)
  Receive Date: 20180112
  Receipt Date: 20180112
  Transmission Date: 20180509
  Serious: Yes (Other)
  Sender: FDA-Public Use
  Company Number: CN-PFIZER INC-2018008016

PATIENT
  Sex: Female

DRUGS (1)
  1. NORVASC [Suspect]
     Active Substance: AMLODIPINE BESYLATE
     Dosage: UNK
     Route: 048

REACTIONS (8)
  - Eye pain [Unknown]
  - Diarrhoea [Unknown]
  - Vomiting [Unknown]
  - Cardiac discomfort [Not Recovered/Not Resolved]
  - Chest discomfort [Unknown]
  - Foreign body sensation in eyes [Unknown]
  - Conjunctivitis [Unknown]
  - Ocular hyperaemia [Unknown]
